FAERS Safety Report 16540634 (Version 2)
Quarter: 2019Q3

REPORT INFORMATION
  Report Type: Spontaneous
  Country: US (occurrence: US)
  Receive Date: 20190708
  Receipt Date: 20190809
  Transmission Date: 20191004
  Serious: No
  Sender: FDA-Public Use
  Company Number: US-SA-2019SA180321

PATIENT
  Age: 63 Year
  Sex: Female

DRUGS (1)
  1. AUBAGIO [Suspect]
     Active Substance: TERIFLUNOMIDE
     Indication: MULTIPLE SCLEROSIS
     Dosage: 14 MG, QD
     Route: 048
     Dates: start: 20190123

REACTIONS (2)
  - Unevaluable event [Unknown]
  - Diarrhoea [Unknown]

NARRATIVE: CASE EVENT DATE: 20190701
